FAERS Safety Report 7808934-2 (Version None)
Quarter: 2011Q4

REPORT INFORMATION
  Report Type: 
  Country: None (occurrence: None)
  Receive Date: 20111012
  Receipt Date: 20111007
  Transmission Date: 20120403
  Serious: Yes (Death, Hospitalization)
  Sender: FDA-Public Use
  Company Number: IT-CEPHALON-2011005329

PATIENT
  Sex: Male

DRUGS (7)
  1. BACTRIM DS [Concomitant]
     Dates: start: 20110716
  2. LEVOFLOXACIN [Concomitant]
     Dates: start: 20110721
  3. SPORANOX [Concomitant]
     Dates: start: 20110720
  4. EFFEXOR [Concomitant]
  5. RITUXIMAB [Suspect]
     Indication: NON-HODGKIN'S LYMPHOMA
     Route: 042
     Dates: start: 20110718
  6. MYELOSTIM [Concomitant]
  7. BENDAMUSTINE HCL [Suspect]
     Indication: NON-HODGKIN'S LYMPHOMA
     Route: 042
     Dates: start: 20110713

REACTIONS (2)
  - FUNGAL INFECTION [None]
  - RESPIRATORY FAILURE [None]
